FAERS Safety Report 8556707-8 (Version None)
Quarter: 2012Q3

REPORT INFORMATION
  Report Type: 
  Country: None (occurrence: None)
  Receive Date: 20120719
  Receipt Date: 20110916
  Transmission Date: 20120928
  Serious: Yes (Other)
  Sender: FDA-Public Use
  Company Number: 2011AP001888

PATIENT
  Age: 65 Year
  Sex: Male

DRUGS (1)
  1. TERBINAFINE HYDROCHLORIDE [Suspect]
     Indication: PRODUCT USED FOR UNKNOWN INDICATION
     Dosage: 1 TAB; QD

REACTIONS (8)
  - SKIN EXFOLIATION [None]
  - DRY SKIN [None]
  - DRUG INEFFECTIVE [None]
  - SKIN FISSURES [None]
  - NAIL DISORDER [None]
  - HYPERSENSITIVITY [None]
  - NAIL RIDGING [None]
  - HAEMORRHAGE [None]
